FAERS Safety Report 19015245 (Version 2)
Quarter: 2021Q2

REPORT INFORMATION
  Report Type: Spontaneous
  Country: AT (occurrence: AT)
  Receive Date: 20210316
  Receipt Date: 20210419
  Transmission Date: 20210717
  Serious: Yes (Hospitalization)
  Sender: FDA-Public Use
  Company Number: AT-GE HEALTHCARE LIFE SCIENCES-2021CSU001177

PATIENT

DRUGS (2)
  1. CLARISCAN [Suspect]
     Active Substance: GADOTERATE MEGLUMINE
     Indication: METASTASES TO BONE
  2. CLARISCAN [Suspect]
     Active Substance: GADOTERATE MEGLUMINE
     Indication: MAGNETIC RESONANCE IMAGING SPINAL
     Dosage: 10 ML, SINGLE
     Route: 042
     Dates: start: 20210305, end: 20210305

REACTIONS (6)
  - Chills [Recovered/Resolved]
  - Body temperature increased [Recovered/Resolved]
  - Blood pressure increased [Unknown]
  - Vomiting [Recovered/Resolved]
  - Dyspnoea [Unknown]
  - Spinal pain [Unknown]

NARRATIVE: CASE EVENT DATE: 20210305
